FAERS Safety Report 7093574-6 (Version None)
Quarter: 2010Q4

REPORT INFORMATION
  Report Type: 
  Country: None (occurrence: None)
  Receive Date: 20101101
  Receipt Date: 20101025
  Transmission Date: 20110411
  Serious: Yes (Death)
  Sender: FDA-Public Use
  Company Number: DSA_44177_2010

PATIENT
  Sex: Male

DRUGS (3)
  1. XENAZINE [Suspect]
     Indication: HUNTINGTON'S DISEASE
     Dosage: 12.5 MG TID
     Dates: start: 20090728
  2. CARDIOVASCULAR SYSTEM DRUGS [Concomitant]
  3. DRUG USE IN DIABETES [Concomitant]

REACTIONS (1)
  - CARDIAC FAILURE [None]
